FAERS Safety Report 14950076 (Version 1)
Quarter: 2018Q2

REPORT INFORMATION
  Report Type: Spontaneous
  Country: US (occurrence: US)
  Receive Date: 20180530
  Receipt Date: 20180530
  Transmission Date: 20180711
  Serious: Yes (Death, Hospitalization)
  Sender: FDA-Public Use
  Company Number: US-CIPLA LTD.-2018US18894

PATIENT

DRUGS (6)
  1. BUPROPION. [Suspect]
     Active Substance: BUPROPION
     Dosage: UNK
     Route: 048
  2. TRAZODONE [Suspect]
     Active Substance: TRAZODONE HYDROCHLORIDE
     Dosage: UNK
     Route: 048
  3. ACUTE CHLOROPHENOXY HERBICIDE [Suspect]
     Active Substance: UNSPECIFIED INGREDIENT
     Dosage: UNK
     Route: 048
  4. SERTRALINE [Suspect]
     Active Substance: SERTRALINE HYDROCHLORIDE
     Dosage: UNK
     Route: 048
  5. CLEANER (ANIONIC/NON-IONIC) [Suspect]
     Active Substance: UNSPECIFIED INGREDIENT
     Dosage: UNK
     Route: 048
  6. SODIUM HYDROXIDE. [Suspect]
     Active Substance: SODIUM HYDROXIDE
     Dosage: UNK
     Route: 048

REACTIONS (25)
  - Aspartate aminotransferase increased [None]
  - White blood cell count increased [None]
  - Laryngeal erythema [None]
  - Toxicity to various agents [Fatal]
  - Blood pH decreased [None]
  - Alanine aminotransferase increased [None]
  - Completed suicide [None]
  - Diarrhoea [None]
  - Pulmonary oedema [None]
  - Blood calcium decreased [None]
  - Carbon dioxide decreased [None]
  - Neck injury [None]
  - Electrocardiogram QT prolonged [None]
  - Blood pressure decreased [None]
  - Blood glucose increased [None]
  - Suicide attempt [Unknown]
  - Pulse absent [None]
  - Apnoea [None]
  - Blood potassium increased [None]
  - Laceration [None]
  - Gastrointestinal mucosal exfoliation [None]
  - Anion gap increased [None]
  - PCO2 increased [None]
  - PO2 decreased [None]
  - Mouth haemorrhage [None]
